FAERS Safety Report 5741347-6 (Version None)
Quarter: 2008Q2

REPORT INFORMATION
  Report Type: 
  Country: None (occurrence: None)
  Receive Date: 20080513
  Receipt Date: 20080424
  Transmission Date: 20081010
  Serious: Yes (Life-Threatening, Hospitalization)
  Sender: FDA-Public Use
  Company Number: 2008S1000163

PATIENT
  Age: 73 Year
  Sex: Male
  Weight: 96 kg

DRUGS (6)
  1. CUBICIN [Suspect]
     Indication: ARTHRITIS BACTERIAL
     Dosage: 5.83 MG/KG;Q24H;IV
     Route: 042
     Dates: start: 20070816
  2. BISOPROLOL [Concomitant]
  3. DIGOXIN [Concomitant]
  4. FUROSEMIDE [Concomitant]
  5. CIPROFLOXACIN HCL [Concomitant]
  6. SPIRONOLACTONE [Concomitant]

REACTIONS (12)
  - ACUTE PRERENAL FAILURE [None]
  - ARTHRITIS [None]
  - ATRIAL FIBRILLATION [None]
  - CHILLS [None]
  - DIARRHOEA [None]
  - HYPOTENSION [None]
  - JOINT EFFUSION [None]
  - JOINT SWELLING [None]
  - PYREXIA [None]
  - RENAL FAILURE ACUTE [None]
  - SUPRAVENTRICULAR TACHYCARDIA [None]
  - VENTRICULAR TACHYCARDIA [None]
